FAERS Safety Report 7106210-7 (Version None)
Quarter: 2010Q4

REPORT INFORMATION
  Report Type: 
  Country: None (occurrence: None)
  Receive Date: 20101116
  Receipt Date: 20101111
  Transmission Date: 20110411
  Serious: Yes (Other)
  Sender: FDA-Public Use
  Company Number: GB-PFIZER INC-2010135055

PATIENT
  Age: 72 Year
  Sex: Male

DRUGS (1)
  1. LYRICA [Suspect]
     Dosage: UNK

REACTIONS (7)
  - AMNESIA [None]
  - BALANCE DISORDER [None]
  - BONE DISORDER [None]
  - ERECTILE DYSFUNCTION [None]
  - HAND DEFORMITY [None]
  - HYPOAESTHESIA [None]
  - PAIN IN EXTREMITY [None]
